FAERS Safety Report 24083856 (Version 2)
Quarter: 2024Q3

REPORT INFORMATION
  Report Type: Spontaneous
  Country: CA (occurrence: CA)
  Receive Date: 20240712
  Receipt Date: 20240906
  Transmission Date: 20241016
  Serious: Yes (Death, Hospitalization, Other)
  Sender: PFIZER
  Company Number: CA-PFIZER INC-202400191638

PATIENT
  Age: 62 Year
  Sex: Female

DRUGS (1)
  1. ABRILADA [Suspect]
     Active Substance: ADALIMUMAB-AFZB
     Indication: Psoriatic arthropathy
     Dosage: 40 MG, EVERY 2 WEEKS
     Route: 058
     Dates: start: 20221107

REACTIONS (2)
  - Death [Fatal]
  - Myocardial infarction [Not Recovered/Not Resolved]

NARRATIVE: CASE EVENT DATE: 20240525
